FAERS Safety Report 6801981-9 (Version None)
Quarter: 2010Q2

REPORT INFORMATION
  Report Type: 
  Country: None (occurrence: None)
  Receive Date: 20100629
  Receipt Date: 20081021
  Transmission Date: 20101027
  Serious: No
  Sender: FDA-Public Use
  Company Number: US-PFIZER INC-2008080742

PATIENT
  Sex: Female
  Weight: 68.04 kg

DRUGS (1)
  1. XALATAN [Suspect]
     Indication: GLAUCOMA
     Route: 047

REACTIONS (5)
  - CIRCUMSTANCE OR INFORMATION CAPABLE OF LEADING TO MEDICATION ERROR [None]
  - INTRAOCULAR PRESSURE INCREASED [None]
  - LACRIMATION INCREASED [None]
  - OEDEMA PERIPHERAL [None]
  - PAIN IN EXTREMITY [None]
